FAERS Safety Report 6186779-X (Version None)
Quarter: 2009Q2

REPORT INFORMATION
  Report Type: 
  Country: None (occurrence: None)
  Receive Date: 20090512
  Receipt Date: 20090502
  Transmission Date: 20091009
  Serious: Yes (Other)
  Sender: FDA-Public Use
  Company Number: GB-ROCHE-631317

PATIENT
  Sex: Female
  Weight: 108 kg

DRUGS (1)
  1. XENICAL [Suspect]
     Indication: OBESITY
     Route: 048
     Dates: start: 20081209

REACTIONS (2)
  - HEADACHE [None]
  - HERPES ZOSTER [None]
